FAERS Safety Report 20290869 (Version 1)
Quarter: 2022Q1

REPORT INFORMATION
  Report Type: Spontaneous
  Country: US (occurrence: None)
  Receive Date: 20220103
  Receipt Date: 20220103
  Transmission Date: 20220423
  Serious: Yes (Other)
  Sender: FDA-Public Use
  Company Number: None

PATIENT
  Age: 60 Year
  Sex: Female
  Weight: 54 kg

DRUGS (1)
  1. CLINDAMYCIN HYDROCHLORIDE [Suspect]
     Active Substance: CLINDAMYCIN HYDROCHLORIDE
     Indication: Tooth abscess
     Dosage: OTHER QUANTITY : 30 CAPSULE(S);?FREQUENCY : EVERY 6 HOURS;?
     Route: 048
     Dates: start: 20211229, end: 20220103

REACTIONS (4)
  - Rash [None]
  - Blister [None]
  - Skin exfoliation [None]
  - Urticaria [None]

NARRATIVE: CASE EVENT DATE: 20211229
